FAERS Safety Report 6127323-2 (Version None)
Quarter: 2009Q1

REPORT INFORMATION
  Report Type: 
  Country: None (occurrence: None)
  Receive Date: 20090319
  Receipt Date: 20090313
  Transmission Date: 20090719
  Serious: Yes (Hospitalization)
  Sender: FDA-Public Use
  Company Number: 2008-188217-NL

PATIENT
  Age: 60 Year
  Sex: Female
  Weight: 56 kg

DRUGS (13)
  1. ROCURONIUM BROMIDE [Suspect]
     Indication: HYPOTONIA
     Dosage: 40 MG INTRAVENOUS (NOS)
     Route: 042
     Dates: start: 20080619, end: 20080619
  2. DIPRIVAN [Concomitant]
  3. ULTIVA [Concomitant]
  4. ATROPINE [Concomitant]
  5. SEVOFRANE [Concomitant]
  6. NICARPINE [Concomitant]
  7. ONOACT [Concomitant]
  8. ALTAT [Concomitant]
  9. ROPION [Concomitant]
  10. VAGOSTIGMIN [Concomitant]
  11. FLUMARIN [Concomitant]
  12. ADALAT [Concomitant]
  13. CANDERSARTAN CILEXETIL [Concomitant]

REACTIONS (6)
  - ALANINE AMINOTRANSFERASE INCREASED [None]
  - ASPARTATE AMINOTRANSFERASE INCREASED [None]
  - BLOOD BILIRUBIN INCREASED [None]
  - POST PROCEDURAL HAEMORRHAGE [None]
  - SHOCK HAEMORRHAGIC [None]
  - SURGICAL PROCEDURE REPEATED [None]
